FAERS Safety Report 4635776-1 (Version None)
Quarter: 2005Q2

REPORT INFORMATION
  Report Type: 
  Country: None (occurrence: None)
  Receive Date: 20050414
  Receipt Date: 20050329
  Transmission Date: 20051028
  Serious: Yes (Other)
  Sender: FDA-Public Use
  Company Number: 2005056400

PATIENT
  Age: 64 Year
  Sex: 0
  Weight: 64 kg

DRUGS (1)
  1. DIFLUCAN [Suspect]
     Indication: GASTROINTESTINAL CANDIDIASIS
     Dosage: ORAL
     Route: 048
     Dates: start: 20030520, end: 20030520

REACTIONS (2)
  - BLISTER [None]
  - SCAR [None]
